FAERS Safety Report 20378690 (Version 1)
Quarter: 2022Q1

REPORT INFORMATION
  Report Type: Spontaneous
  Country: US (occurrence: None)
  Receive Date: 20220125
  Receipt Date: 20220125
  Transmission Date: 20220423
  Serious: Yes (Life-Threatening)
  Sender: FDA-Public Use
  Company Number: None

PATIENT
  Age: 79 Year
  Sex: Female

DRUGS (1)
  1. AMPICILLIN SODIUM\SULBACTAM SODIUM [Suspect]
     Active Substance: AMPICILLIN SODIUM\SULBACTAM SODIUM
     Indication: Pneumonia aspiration
     Dosage: FREQUENCY : TWICE A DAY;?
     Route: 042

REACTIONS (3)
  - Swollen tongue [None]
  - Lip swelling [None]
  - Tongue discolouration [None]

NARRATIVE: CASE EVENT DATE: 20210219
